FAERS Safety Report 24911653 (Version 3)
Quarter: 2025Q3

REPORT INFORMATION
  Report Type: Spontaneous
  Country: AU (occurrence: AU)
  Receive Date: 20250131
  Receipt Date: 20250809
  Transmission Date: 20251021
  Serious: Yes (Other)
  Sender: ALEXION PHARMACEUTICALS
  Company Number: AU-SA-2025SA023549

PATIENT
  Sex: Male

DRUGS (3)
  1. NIRSEVIMAB [Suspect]
     Active Substance: NIRSEVIMAB
     Indication: Product used for unknown indication
     Route: 065
     Dates: start: 20240721, end: 20240721
  2. ENGERIX-B [Suspect]
     Active Substance: HEPATITIS B VIRUS SUBTYPE ADW2 HBSAG SURFACE PROTEIN ANTIGEN
     Indication: Immunisation
     Route: 065
  3. VITAMIN K1 [Concomitant]
     Active Substance: PHYTONADIONE
     Indication: Product used for unknown indication
     Route: 065

REACTIONS (5)
  - Bradycardia neonatal [Unknown]
  - Choking [Unknown]
  - Thrombocytopenia [Unknown]
  - Feeling jittery [Unknown]
  - Jaundice neonatal [Unknown]

NARRATIVE: CASE EVENT DATE: 20240724
